FAERS Safety Report 9625630 (Version 1)
Quarter: 2013Q4

REPORT INFORMATION
  Report Type: Report from Study
  Country: NL (occurrence: NL)
  Receive Date: 20131016
  Receipt Date: 20131016
  Transmission Date: 20140711
  Serious: Yes (Hospitalization)
  Sender: FDA-Public Use
  Company Number: NL-JNJFOC-20130811407

PATIENT
  Age: 6 Decade
  Sex: Male

DRUGS (2)
  1. ZYTIGA [Suspect]
     Indication: PROSTATE CANCER
     Route: 048
     Dates: start: 20110919, end: 20111018
  2. PREDNISON [Concomitant]
     Route: 065

REACTIONS (2)
  - Pleural effusion [Recovered/Resolved]
  - Obstructive airways disorder [Recovered/Resolved]
